FAERS Safety Report 8991450 (Version 1)
Quarter: 2012Q4

REPORT INFORMATION
  Report Type: Report from Study
  Country: CA (occurrence: CA)
  Receive Date: 20121231
  Receipt Date: 20121231
  Transmission Date: 20130627
  Serious: Yes (Other)
  Sender: FDA-Public Use
  Company Number: CA-ROCHE-1174239

PATIENT
  Sex: Male
  Weight: 62.67 kg

DRUGS (3)
  1. OMALIZUMAB [Suspect]
     Indication: ASTHMA
     Route: 058
     Dates: start: 20050928
  2. OMALIZUMAB [Suspect]
     Route: 058
     Dates: start: 20091110
  3. OMALIZUMAB [Suspect]
     Route: 058
     Dates: start: 20100129

REACTIONS (12)
  - Weight decreased [Unknown]
  - Injury [Unknown]
  - Diarrhoea [Unknown]
  - Blood pressure increased [Unknown]
  - Hyperglycaemia [Unknown]
  - Bronchitis [Unknown]
  - Gastroenteritis [Unknown]
  - Wound secretion [Unknown]
  - Pain [Unknown]
  - Pallor [Unknown]
  - Fatigue [Unknown]
  - Dizziness [Unknown]
